FAERS Safety Report 5127598-2 (Version None)
Quarter: 2006Q4

REPORT INFORMATION
  Report Type: 
  Country: None (occurrence: None)
  Receive Date: 20061016
  Receipt Date: 20061004
  Transmission Date: 20070319
  Serious: Yes (Hospitalization)
  Sender: FDA-Public Use
  Company Number: US-KINGPHARMUSA00001-K200601269

PATIENT
  Age: 72 Year
  Sex: Male

DRUGS (6)
  1. ALTACE [Suspect]
     Route: 048
     Dates: end: 20060822
  2. LASILIX /00032601/ [Suspect]
     Route: 048
  3. AMLOR [Suspect]
     Route: 048
  4. DIAMICRON [Concomitant]
  5. ATENOLOL [Concomitant]
  6. METFORMIN HCL [Concomitant]

REACTIONS (15)
  - BLOOD CREATINE PHOSPHOKINASE INCREASED [None]
  - BLOOD CREATININE INCREASED [None]
  - BLOOD IMMUNOGLOBULIN E INCREASED [None]
  - BLOOD LACTATE DEHYDROGENASE INCREASED [None]
  - DERMATITIS CONTACT [None]
  - DERMATOSIS [None]
  - ECZEMA [None]
  - EOSINOPHIL COUNT INCREASED [None]
  - ICHTHYOSIS [None]
  - IMPETIGO [None]
  - OEDEMA PERIPHERAL [None]
  - PAIN IN EXTREMITY [None]
  - PRURITUS [None]
  - SKIN EXFOLIATION [None]
  - WHITE BLOOD CELL COUNT INCREASED [None]
